FAERS Safety Report 25091158 (Version 3)
Quarter: 2025Q1

REPORT INFORMATION
  Report Type: Spontaneous
  Country: US (occurrence: US)
  Receive Date: 20250318
  Receipt Date: 20250327
  Transmission Date: 20250408
  Serious: Yes (Hospitalization, Other)
  Sender: PFIZER
  Company Number: US-PFIZER INC-202500059128

PATIENT
  Age: 71 Year
  Sex: Female

DRUGS (1)
  1. XELJANZ XR [Suspect]
     Active Substance: TOFACITINIB CITRATE
     Dosage: 11MG ONCE DAILY

REACTIONS (4)
  - Seizure [Unknown]
  - Speech disorder [Unknown]
  - Aphonia [Unknown]
  - Memory impairment [Unknown]

NARRATIVE: CASE EVENT DATE: 20240617
